FAERS Safety Report 6811021-3 (Version None)
Quarter: 2010Q2

REPORT INFORMATION
  Report Type: 
  Country: None (occurrence: None)
  Receive Date: 20100630
  Receipt Date: 20090105
  Transmission Date: 20101027
  Serious: No
  Sender: FDA-Public Use
  Company Number: US-PFIZER INC-2009152050

PATIENT
  Sex: Female
  Weight: 54 kg

DRUGS (3)
  1. ESTRING [Suspect]
     Dosage: UNK
     Dates: start: 20070601
  2. PROLOPRIM [Concomitant]
     Dosage: UNK
  3. ALL OTHER THERAPEUTIC PRODUCTS [Concomitant]
     Dosage: UNK

REACTIONS (1)
  - DRUG INEFFECTIVE [None]
